FAERS Safety Report 7201725-5 (Version None)
Quarter: 2010Q4

REPORT INFORMATION
  Report Type: 
  Country: None (occurrence: None)
  Receive Date: 20101216
  Receipt Date: 20101123
  Transmission Date: 20110411
  Serious: Yes (Hospitalization)
  Sender: FDA-Public Use
  Company Number: FKO201000528

PATIENT
  Age: 32 Year
  Sex: Female

DRUGS (4)
  1. IFOSFAMIDE [Suspect]
     Indication: DIFFUSE LARGE B-CELL LYMPHOMA
  2. MESNA (MESNA) (MESNA) [Concomitant]
  3. CARBOPLATIN [Concomitant]
  4. ETOPOSIDE [Concomitant]

REACTIONS (9)
  - ENCEPHALOPATHY [None]
  - EXTENSOR PLANTAR RESPONSE [None]
  - GRAND MAL CONVULSION [None]
  - HYPERTONIA [None]
  - METABOLIC ACIDOSIS [None]
  - MYDRIASIS [None]
  - NEUROTOXICITY [None]
  - QRS AXIS ABNORMAL [None]
  - SINUS TACHYCARDIA [None]
